FAERS Safety Report 8502708 (Version 3)
Quarter: 2012Q4

REPORT INFORMATION
  Report Type: 
  Country: US (occurrence: US)
  Receive Date: 20120410
  Receipt Date: 20120905
  Transmission Date: 20130627
  Serious: Yes (Hospitalization, Other)
  Sender: FDA-Public Use
  Company Number: US-BAYER-2012-032783

PATIENT
  Age: 36 Year
  Sex: Female
  Weight: 81.63 kg

DRUGS (5)
  1. YASMIN [Suspect]
     Indication: MENORRHAGIA
     Dosage: UNK
     Dates: start: 20051223, end: 20060320
  2. LEXAPRO [Concomitant]
     Indication: MENTAL DISORDER
     Dosage: 10 mg
     Dates: start: 20060315
  3. SULINDAC [Concomitant]
     Indication: PAIN
     Dosage: 200 mg, UNK
     Dates: start: 20060315
  4. CITALOPRAM [Concomitant]
     Indication: MENTAL DISORDER
     Dosage: UNK
     Dates: start: 2006
  5. CYMBALTA [Concomitant]
     Indication: MENTAL DISORDER
     Dosage: UNK
     Dates: start: 2006

REACTIONS (4)
  - Pelvic venous thrombosis [None]
  - Thrombosis [None]
  - Injury [None]
  - Pain [None]
